FAERS Safety Report 7624248-8 (Version None)
Quarter: 2011Q3

REPORT INFORMATION
  Report Type: 
  Country: None (occurrence: None)
  Receive Date: 20110720
  Receipt Date: 20101213
  Transmission Date: 20111222
  Serious: Yes (Hospitalization, Other)
  Sender: FDA-Public Use
  Company Number: BR-BAYER-200916655LA

PATIENT
  Age: 19 Year
  Sex: Female

DRUGS (31)
  1. CICLESONIDE [Concomitant]
     Indication: RHINITIS
     Dosage: UNK
     Route: 045
  2. TIMOLOL [Concomitant]
     Indication: PROPHYLAXIS
     Dosage: 2 GTT, BID
     Route: 047
     Dates: start: 20100901
  3. UNKNOWN DRUG [Concomitant]
     Indication: RHINITIS
     Dosage: 1 DF, PRN
     Route: 045
     Dates: start: 20100101
  4. BETASERON [Suspect]
     Dosage: BETAJECT
     Route: 058
     Dates: end: 20100615
  5. DORFLEX [Concomitant]
     Indication: MALAISE
     Route: 048
     Dates: start: 20090601, end: 20100727
  6. URO-VAXOM [ESCHERICHIA COLI] [Concomitant]
     Indication: IMMUNISATION
     Dosage: 1 DF, HS
     Route: 048
     Dates: start: 20110216
  7. ACETAMINOPHEN [Concomitant]
     Indication: ASTHENIA
  8. BETASERON [Suspect]
     Dosage: 8 MIU, QOD
     Route: 058
     Dates: start: 20100101
  9. OMEPRAZOLE [Concomitant]
     Indication: GASTROOESOPHAGEAL REFLUX DISEASE
  10. VITAMIN D [Concomitant]
     Indication: MULTIPLE SCLEROSIS
     Dosage: 1 DF, QD
     Route: 048
     Dates: start: 20110101
  11. ACETAMINOPHEN [Concomitant]
     Indication: CHILLS
     Dosage: 1 DF, PRN
     Route: 048
     Dates: start: 20081101
  12. ACETAMINOPHEN [Concomitant]
     Indication: HEADACHE
  13. BETASERON [Suspect]
     Indication: RELAPSING-REMITTING MULTIPLE SCLEROSIS
     Dosage: BETAJECT
     Route: 058
     Dates: start: 20081101
  14. PANTOPRAZOLE SODIUM [Concomitant]
     Indication: GASTROOESOPHAGEAL REFLUX DISEASE
     Route: 048
     Dates: end: 20100115
  15. MOTILIUM [Concomitant]
     Indication: GASTROOESOPHAGEAL REFLUX DISEASE
  16. PANTOPRAZOLE SODIUM [Concomitant]
     Indication: GASTROOESOPHAGEAL REFLUX PROPHYLAXIS
  17. MOTILIUM [Concomitant]
     Indication: GASTROOESOPHAGEAL REFLUX PROPHYLAXIS
     Route: 048
     Dates: end: 20100115
  18. NALDECON [Concomitant]
     Indication: RHINITIS
     Route: 045
     Dates: start: 20060101
  19. NALIDIXIC ACID [Concomitant]
     Indication: INFECTION PROPHYLAXIS
     Dosage: 1 DF, QD
     Route: 048
     Dates: start: 20100301
  20. HERBALIFE PRODUCTS [Concomitant]
     Indication: INSOMNIA
     Route: 048
  21. DORFLEX [Concomitant]
     Indication: HEADACHE
     Dosage: UNK, QD
     Route: 048
     Dates: start: 20081101
  22. DORFLEX [Concomitant]
     Indication: PROPHYLAXIS
     Dosage: 1 DF, PRN
     Route: 048
     Dates: start: 20100506
  23. DORFLEX [Concomitant]
  24. OMEPRAZOLE [Concomitant]
     Indication: GASTRITIS
  25. VITAMIN D [Concomitant]
     Indication: NEUROLOGICAL SYMPTOM
     Dosage: UNK
     Route: 048
     Dates: start: 20101001
  26. NALIDIXIC ACID [Concomitant]
     Dosage: 1 DF, QD
     Route: 048
     Dates: start: 20110101
  27. UNKNOWN MEDICATION [Concomitant]
     Indication: PROPHYLAXIS URINARY TRACT INFECTION
     Dosage: 1 DF, QD
     Route: 048
     Dates: start: 20110101
  28. ACETAMINOPHEN [Concomitant]
     Indication: MALAISE
  29. ACETAMINOPHEN [Concomitant]
     Indication: HEAD DISCOMFORT
  30. MOTILIUM [Concomitant]
     Indication: GASTRITIS
  31. OMEPRAZOLE [Concomitant]
     Indication: PROPHYLAXIS
     Route: 048
     Dates: start: 20100701

REACTIONS (48)
  - GASTROOESOPHAGEAL REFLUX DISEASE [None]
  - INJECTION SITE HAEMATOMA [None]
  - INJECTION SITE RASH [None]
  - INJECTION SITE PAIN [None]
  - INJECTION SITE HAEMORRHAGE [None]
  - FEELING COLD [None]
  - THERMOHYPERAESTHESIA [None]
  - WEIGHT INCREASED [None]
  - TENSION [None]
  - BONE PAIN [None]
  - ERYTHEMA [None]
  - MUSCULAR WEAKNESS [None]
  - OPTIC NERVE CUPPING [None]
  - MULTIPLE SCLEROSIS [None]
  - SCAR [None]
  - CLAVICLE FRACTURE [None]
  - DYSPNOEA [None]
  - INJECTION SITE ERYTHEMA [None]
  - HEADACHE [None]
  - URINARY INCONTINENCE [None]
  - AFFECT LABILITY [None]
  - PAIN IN EXTREMITY [None]
  - COORDINATION ABNORMAL [None]
  - ABDOMINAL DISCOMFORT [None]
  - CRYING [None]
  - HEAD DISCOMFORT [None]
  - BALANCE DISORDER [None]
  - INSOMNIA [None]
  - LISTLESS [None]
  - ERUCTATION [None]
  - DYSPEPSIA [None]
  - MALAISE [None]
  - FALL [None]
  - POLLAKIURIA [None]
  - TREMOR [None]
  - INJECTION SITE PRURITUS [None]
  - INJECTION SITE DISCOLOURATION [None]
  - REFLUX GASTRITIS [None]
  - ASTHENIA [None]
  - CHILLS [None]
  - DRY EYE [None]
  - INJECTION SITE DISCOMFORT [None]
  - LEARNING DISORDER [None]
  - FATIGUE [None]
  - WEIGHT DECREASED [None]
  - URINARY TRACT INFECTION [None]
  - NERVOUSNESS [None]
  - PAIN [None]
